FAERS Safety Report 6401095-6 (Version None)
Quarter: 2009Q4

REPORT INFORMATION
  Report Type: 
  Country: None (occurrence: None)
  Receive Date: 20091009
  Receipt Date: 20091009
  Transmission Date: 20100525
  Serious: Yes (Life-Threatening, Hospitalization, Other)
  Sender: FDA-Public Use
  Company Number: None

PATIENT
  Age: 65 Year
  Sex: Female
  Weight: 89.8122 kg

DRUGS (1)
  1. FENTANYL-75 [Suspect]
     Dosage: 1 PATCH EVERY 3 DAYS
     Dates: start: 20090709, end: 20090710

REACTIONS (5)
  - APPARENT DEATH [None]
  - CYSTITIS [None]
  - INCOHERENT [None]
  - INCONTINENCE [None]
  - RENAL FAILURE [None]
